FAERS Safety Report 8205618-6 (Version None)
Quarter: 2012Q1

REPORT INFORMATION
  Report Type: 
  Country: None (occurrence: None)
  Receive Date: 20120313
  Receipt Date: 20120307
  Transmission Date: 20120608
  Serious: Yes (Hospitalization)
  Sender: FDA-Public Use
  Company Number: US-ACTELION-A-NJ2012-61716

PATIENT

DRUGS (18)
  1. APRESOLINE [Concomitant]
  2. COLCHICINE [Concomitant]
  3. ALLOPURINOL [Concomitant]
  4. SYNTHROID [Concomitant]
  5. NOVOLOG [Concomitant]
  6. LOPRESSOR [Concomitant]
  7. NORVASC [Concomitant]
  8. ACETYLSALICYLIC ACID SRT [Concomitant]
  9. COLACE [Concomitant]
  10. VANCOMYCIN [Concomitant]
  11. POTASSIUM CHLORIDE [Concomitant]
  12. OXYGEN [Concomitant]
  13. COUMADIN [Concomitant]
  14. BACTRIM [Concomitant]
  15. TORSEMIDE [Concomitant]
  16. TRACLEER [Suspect]
     Indication: PULMONARY ARTERIAL HYPERTENSION
     Dosage: UNK
     Route: 048
     Dates: start: 20100616
  17. ZAROXOLYN [Concomitant]
  18. PRILOSEC [Concomitant]

REACTIONS (7)
  - INTERVERTEBRAL DISCITIS [None]
  - GAIT DISTURBANCE [None]
  - RADICULITIS CERVICAL [None]
  - BACK PAIN [None]
  - FRACTURED SACRUM [None]
  - LUMBAR SPINAL STENOSIS [None]
  - RADICULITIS LUMBOSACRAL [None]
